FAERS Safety Report 6091645-4 (Version None)
Quarter: 2009Q1

REPORT INFORMATION
  Report Type: 
  Country: None (occurrence: None)
  Receive Date: 20090225
  Receipt Date: 20080320
  Transmission Date: 20090719
  Serious: No
  Sender: FDA-Public Use
  Company Number: A0716687A

PATIENT
  Age: 21 Year
  Sex: Female

DRUGS (5)
  1. VALTREX [Suspect]
     Indication: GENITAL HERPES
     Dosage: 500MG PER DAY
     Route: 048
     Dates: start: 20080305, end: 20080307
  2. CRANBERRY [Concomitant]
  3. CALCIUM [Concomitant]
  4. DIFLUCAN [Concomitant]
  5. BENADRYL [Concomitant]

REACTIONS (11)
  - ABDOMINAL PAIN UPPER [None]
  - BLISTER [None]
  - DIARRHOEA [None]
  - DRY SKIN [None]
  - ERYTHEMA [None]
  - PHARYNGEAL OEDEMA [None]
  - PRURITUS [None]
  - SKIN BURNING SENSATION [None]
  - SKIN TIGHTNESS [None]
  - SWELLING [None]
  - VOMITING [None]
